FAERS Safety Report 8265775-2 (Version None)
Quarter: 2012Q2

REPORT INFORMATION
  Report Type: 
  Country: None (occurrence: None)
  Receive Date: 20120406
  Receipt Date: 20120402
  Transmission Date: 20120825
  Serious: Yes (Death, Hospitalization)
  Sender: FDA-Public Use
  Company Number: PHHY2012JP028066

PATIENT
  Age: 75 Year
  Sex: Male

DRUGS (3)
  1. ETANERCEPT [Suspect]
     Indication: INTERSTITIAL LUNG DISEASE
  2. METHYLPREDNISOLONE [Suspect]
     Indication: INTERSTITIAL LUNG DISEASE
  3. CYCLOPHOSPHAMIDE [Suspect]
     Indication: INTERSTITIAL LUNG DISEASE

REACTIONS (11)
  - CYTOMEGALOVIRUS INFECTION [None]
  - PSEUDOMEMBRANOUS COLITIS [None]
  - INTERSTITIAL LUNG DISEASE [None]
  - HISTIOCYTOSIS HAEMATOPHAGIC [None]
  - ASPERGILLOSIS [None]
  - CONDITION AGGRAVATED [None]
  - MULTI-ORGAN FAILURE [None]
  - ATRIAL FIBRILLATION [None]
  - DISSEMINATED INTRAVASCULAR COAGULATION [None]
  - HAEMORRHAGIC CEREBRAL INFARCTION [None]
  - DRUG INEFFECTIVE [None]
